FAERS Safety Report 7035861-3 (Version None)
Quarter: 2010Q4

REPORT INFORMATION
  Report Type: 
  Country: None (occurrence: None)
  Receive Date: 20101008
  Receipt Date: 20100928
  Transmission Date: 20110411
  Serious: Yes (Other)
  Sender: FDA-Public Use
  Company Number: GXKR2010GB11014

PATIENT
  Sex: Female

DRUGS (12)
  1. ALENDRONIC ACID (NGX) [Suspect]
     Dosage: 70 MG, UNK
     Route: 048
     Dates: start: 20100902, end: 20100916
  2. ACETYLSALICYLIC ACID SRT [Concomitant]
     Indication: ESSENTIAL HYPERTENSION
     Dosage: 75 MG, QD
     Route: 048
  3. BUDESONIDE [Concomitant]
     Indication: ASTHMA
     Dosage: 1 DF, BID
  4. COLECALCIFEROL [Concomitant]
     Indication: OSTEOPOROSIS
     Dosage: 1.25 G, BID
     Route: 048
  5. E45 ITCH RELIEF [Concomitant]
     Indication: SKIN DISORDER
     Dosage: UNK
  6. FORMOTEROL FUMARATE [Concomitant]
     Indication: ASTHMA
     Dosage: 1 DF, BID
  7. ISPAGHULA HUSK [Concomitant]
     Indication: ABDOMINAL PAIN LOWER
     Dosage: 3.5 G, PRN
     Route: 048
  8. LATANOPROST [Concomitant]
     Indication: GLAUCOMA
     Dosage: 2.5 ML, QD
  9. LERCANIDIPINE [Concomitant]
     Indication: ESSENTIAL HYPERTENSION
     Dosage: 10 MG, BID
     Route: 048
  10. RISEDRONATE SODIUM [Concomitant]
     Indication: OSTEOPOROSIS
     Dosage: 35 MG, QW
     Route: 048
  11. ROCALTROL [Concomitant]
     Indication: OSTEOPOROSIS
     Dosage: 250 NG, QD
     Route: 048
  12. SALBUTAMOL [Concomitant]
     Indication: ASTHMA
     Dosage: 200 UG, PRN

REACTIONS (2)
  - DYSPHONIA [None]
  - PALPITATIONS [None]
